FAERS Safety Report 7306143-7 (Version None)
Quarter: 2011Q1

REPORT INFORMATION
  Report Type: 
  Country: None (occurrence: None)
  Receive Date: 20110209
  Receipt Date: 20110125
  Transmission Date: 20110831
  Serious: Yes (Hospitalization, Other)
  Sender: FDA-Public Use
  Company Number: AUR-APL-2011-00309

PATIENT
  Age: 45 Year
  Sex: Male

DRUGS (10)
  1. HYDRALAZINE [Concomitant]
  2. FUROSEMIDE [Concomitant]
  3. ISOSORBIDE DINITRATE [Concomitant]
  4. SIMVASTATIN [Suspect]
     Dosage: 80MG-DAILY
  5. QUINAPRIL [Concomitant]
  6. CARVEDILOL [Concomitant]
  7. MONONITRATE [Concomitant]
  8. SIMVASTATIN [Suspect]
     Dosage: 40MG-DAILY
  9. WARFARIN [Concomitant]
  10. SPIRONOLACTONE [Concomitant]

REACTIONS (15)
  - HYPOTHERMIA [None]
  - PULSELESS ELECTRICAL ACTIVITY [None]
  - ELECTROCARDIOGRAM ST SEGMENT ELEVATION [None]
  - TROPONIN INCREASED [None]
  - MYOCARDIAL ISCHAEMIA [None]
  - DRUG INTERACTION [None]
  - MYOCARDIAL INFARCTION [None]
  - TOXICITY TO VARIOUS AGENTS [None]
  - RHABDOMYOLYSIS [None]
  - EJECTION FRACTION DECREASED [None]
  - CARDIAC ARREST [None]
  - HAEMOGLOBIN DECREASED [None]
  - ARRHYTHMIA [None]
  - LOSS OF CONSCIOUSNESS [None]
  - BLOOD KETONE BODY INCREASED [None]
